FAERS Safety Report 25267057 (Version 1)
Quarter: 2025Q2

REPORT INFORMATION
  Report Type: Spontaneous
  Country: CN (occurrence: CN)
  Receive Date: 20250505
  Receipt Date: 20250505
  Transmission Date: 20250717
  Serious: Yes (Hospitalization, Disabling)
  Sender: ALEXION PHARMACEUTICALS
  Company Number: CN-ASTRAZENECA-202504CHN025087CN

PATIENT
  Age: 59 Year
  Weight: 81.3 kg

DRUGS (1)
  1. TAGRISSO [Suspect]
     Active Substance: OSIMERTINIB
     Indication: Lung neoplasm malignant
     Dosage: 80 MILLIGRAM, QD

REACTIONS (3)
  - Ejection fraction abnormal [Not Recovered/Not Resolved]
  - Chest discomfort [Unknown]
  - Dyspnoea [Unknown]
